FAERS Safety Report 9323870 (Version 1)
Quarter: 2013Q2

REPORT INFORMATION
  Report Type: Spontaneous
  Country: US (occurrence: None)
  Receive Date: 20130529
  Receipt Date: 20130529
  Transmission Date: 20140414
  Serious: Yes (Hospitalization)
  Sender: FDA-Public Use
  Company Number: CABO-13002707

PATIENT
  Age: 69 Year
  Sex: Male

DRUGS (11)
  1. COMETRIQ (CABOZANTINIB) CAPSULE [Suspect]
     Indication: PROSTATE CANCER
     Route: 048
     Dates: start: 20130419, end: 20130430
  2. ZOCOR (SIMVASTATIN) [Concomitant]
  3. ASA [Concomitant]
  4. CARVEDILOL (CARVEDILOL) [Concomitant]
  5. CHLORTHALIDONE (CHLORTALIDONE) [Concomitant]
  6. METFORMIN (METFORMIN HYDROCHLORIDE) [Concomitant]
  7. MULTIVITAMIN (VITAMINS NOS) [Concomitant]
  8. NOVOLOG (INSULIN ASPART) [Concomitant]
  9. PLAVIX (CLOPIDOGREL BISULFATE) [Concomitant]
  10. PROTONIX (PANTOPRAZOLE SODIUM SESQUIHYDRATE) [Concomitant]
  11. PREDNISONE ACETATE (PREDNISONE ACETATE) [Concomitant]

REACTIONS (5)
  - Syncope [None]
  - Asthenia [None]
  - Decreased appetite [None]
  - Dysphonia [None]
  - Unevaluable event [None]
